FAERS Safety Report 7296846-5 (Version None)
Quarter: 2011Q1

REPORT INFORMATION
  Report Type: 
  Country: None (occurrence: None)
  Receive Date: 20110216
  Receipt Date: 20110210
  Transmission Date: 20110831
  Serious: Yes (Life-Threatening, Hospitalization)
  Sender: FDA-Public Use
  Company Number: JP-ABBOTT-10P-087-0692467-00

PATIENT
  Sex: Male
  Weight: 68 kg

DRUGS (3)
  1. SEVOFLURANE [Suspect]
     Indication: ANAESTHESIA
     Dates: start: 20091104, end: 20091104
  2. REMIFENTANIL HYDROCHLORIDE [Concomitant]
     Indication: ANAESTHESIA
     Dates: start: 20091104, end: 20091104
  3. FENTANYL [Concomitant]
     Indication: ANAESTHESIA
     Dates: start: 20091104, end: 20091104

REACTIONS (4)
  - VENTRICULAR TACHYCARDIA [None]
  - PULMONARY OEDEMA [None]
  - ARTERIOSPASM CORONARY [None]
  - VENTRICULAR FIBRILLATION [None]
